FAERS Safety Report 19573485 (Version 1)
Quarter: 2021Q3

REPORT INFORMATION
  Report Type: Spontaneous
  Country: US (occurrence: US)
  Receive Date: 20210717
  Receipt Date: 20210717
  Transmission Date: 20211014
  Serious: No
  Sender: FDA-Public Use
  Company Number: US-DRREDDYS-SPO/USA/21/0137868

PATIENT
  Age: 26 Year
  Sex: Female

DRUGS (1)
  1. TESTOSTERONE INJECTABLE SUSPENSION [Suspect]
     Active Substance: TESTOSTERONE
     Indication: HORMONE THERAPY
     Dosage: WEEKLY INTRAMUSCULAR TESTOSTERONE INJECTIONS
     Route: 030

REACTIONS (2)
  - Condition aggravated [Unknown]
  - Acne [Unknown]
